FAERS Safety Report 8876846 (Version 1)
Quarter: 2012Q4

REPORT INFORMATION
  Report Type: 
  Country: BE (occurrence: BE)
  Receive Date: 20121030
  Receipt Date: 20121030
  Transmission Date: 20130627
  Serious: Yes (Other)
  Sender: FDA-Public Use
  Company Number: BE-ELI_LILLY_AND_COMPANY-BE201210006038

PATIENT
  Age: 45 Year
  Sex: Female

DRUGS (2)
  1. ZYPADHERA [Suspect]
  2. ZYPREXA [Suspect]
     Indication: SCHIZOPHRENIA
     Dosage: 20 mg, unknown

REACTIONS (4)
  - Malaise [Unknown]
  - Sedation [Unknown]
  - Confusional state [Unknown]
  - Agitation [Unknown]
